FAERS Safety Report 9752807 (Version 1)
Quarter: 2013Q4

REPORT INFORMATION
  Report Type: Spontaneous
  Country: US (occurrence: None)
  Receive Date: 20131212
  Receipt Date: 20131212
  Transmission Date: 20140711
  Serious: Yes (Other)
  Sender: FDA-Public Use
  Company Number: None

PATIENT
  Sex: 0

DRUGS (3)
  1. DEMEROL [Suspect]
     Indication: PANCREATITIS
     Route: 042
     Dates: start: 20131209, end: 20131209
  2. ODANSETRON [Concomitant]
  3. PROTONIX [Concomitant]

REACTIONS (1)
  - Injection site pruritus [None]
